FAERS Safety Report 17825538 (Version 1)
Quarter: 2020Q2

REPORT INFORMATION
  Report Type: Spontaneous
  Country: US (occurrence: US)
  Receive Date: 20200526
  Receipt Date: 20200526
  Transmission Date: 20200714
  Serious: Yes (Death, Other)
  Sender: FDA-Public Use
  Company Number: US-PFIZER INC-2020203498

PATIENT
  Age: 78 Year
  Sex: Male
  Weight: 77.11 kg

DRUGS (2)
  1. VYNDAQEL [Suspect]
     Active Substance: TAFAMIDIS MEGLUMINE
     Indication: AMYLOIDOSIS
     Dosage: 80 MG, 1X/DAY (20MG, FOUR AT A TIME DAILY)
     Route: 048
     Dates: start: 201906
  2. VYNDAQEL [Suspect]
     Active Substance: TAFAMIDIS MEGLUMINE
     Indication: CARDIAC FAILURE

REACTIONS (4)
  - Cardiac failure [Fatal]
  - Dry mouth [Unknown]
  - Dysphagia [Unknown]
  - Oedema [Unknown]

NARRATIVE: CASE EVENT DATE: 20200503
